APPROVED DRUG PRODUCT: ROXILOX
Active Ingredient: ACETAMINOPHEN; OXYCODONE HYDROCHLORIDE
Strength: 500MG;5MG
Dosage Form/Route: CAPSULE;ORAL
Application: A040061 | Product #001
Applicant: ROXANE LABORATORIES INC
Approved: Jul 3, 1995 | RLD: No | RS: No | Type: DISCN